FAERS Safety Report 4819062-2 (Version None)
Quarter: 2005Q4

REPORT INFORMATION
  Report Type: 
  Country: None (occurrence: None)
  Receive Date: 20051102
  Receipt Date: 20051102
  Transmission Date: 20060501
  Serious: No
  Sender: FDA-Public Use
  Company Number: None

PATIENT
  Sex: Male
  Weight: 86 kg

DRUGS (1)
  1. LOVASTATIN [Suspect]
     Indication: DYSLIPIDAEMIA
     Dosage: 10 MG   DAILY   PO
     Route: 048
     Dates: start: 20050104, end: 20050708

REACTIONS (1)
  - ERECTILE DYSFUNCTION [None]
